FAERS Safety Report 5919256-9 (Version None)
Quarter: 2008Q4

REPORT INFORMATION
  Report Type: 
  Country: None (occurrence: None)
  Receive Date: 20081015
  Receipt Date: 20081002
  Transmission Date: 20090506
  Serious: Yes (Hospitalization)
  Sender: FDA-Public Use
  Company Number: PHHO2008DE09942

PATIENT
  Sex: Female
  Weight: 72 kg

DRUGS (10)
  1. CALCIUM D3 SANDOZ (NGX) [Suspect]
     Dosage: 2 X 1
     Dates: start: 20070613, end: 20080111
  2. ZOLEDRONIC ACID [Suspect]
     Indication: OSTEOPOROSIS
     Dosage: BLINDED.
     Route: 042
     Dates: start: 20070705
  3. BLINDED NO TREATMENT RECEIVED NOMED [Suspect]
     Indication: OSTEOPOROSIS
     Dosage: BLINDED.
     Route: 042
     Dates: start: 20070705
  4. BLINDED PLACEBO COMP-PLA+ [Suspect]
     Indication: OSTEOPOROSIS
     Dosage: BLINDED.
     Route: 042
     Dates: start: 20070705
  5. VIGANTOLETTEN [Concomitant]
     Indication: OSTEOPOROSIS
     Dosage: 500 UG, 1 X 1
     Route: 048
     Dates: start: 20080601, end: 20080710
  6. VIGANTOLETTEN [Concomitant]
     Indication: HYPOCALCAEMIA
  7. FORTEO [Concomitant]
     Indication: OSTEOPOROSIS
     Dosage: 20 UG, QD
     Route: 058
     Dates: start: 20070705
  8. DIOVAN [Concomitant]
     Indication: HYPERTENSION
  9. BISOPROLOL FUMARATE [Concomitant]
     Indication: HYPERTENSION
  10. ACETAMINOPHEN [Concomitant]

REACTIONS (8)
  - HYDRONEPHROSIS [None]
  - HYPERCALCAEMIA [None]
  - HYPERPARATHYROIDISM [None]
  - NEPHROLITHIASIS [None]
  - RENAL STONE REMOVAL [None]
  - RENAL SURGERY [None]
  - URETERAL STENT INSERTION [None]
  - URETERAL STENT REMOVAL [None]
